FAERS Safety Report 4642819-8 (Version None)
Quarter: 2005Q2

REPORT INFORMATION
  Report Type: 
  Country: None (occurrence: None)
  Receive Date: 20050421
  Receipt Date: 20050413
  Transmission Date: 20051028
  Serious: No
  Sender: FDA-Public Use
  Company Number: 05H-078-0297505-00

PATIENT
  Age: 55 Year
  Sex: Male

DRUGS (1)
  1. METRONIDAZOLE [Suspect]
     Indication: HEPATIC AMOEBIASIS
     Dosage: 750 MG, THREE TIMES A DAY, INTRAVENOUS INFUSION
     Route: 042

REACTIONS (7)
  - AGGRESSION [None]
  - DELIRIUM [None]
  - HALLUCINATION, VISUAL [None]
  - HYPERHIDROSIS [None]
  - PERSECUTORY DELUSION [None]
  - TACHYCARDIA [None]
  - TACHYPNOEA [None]
